FAERS Safety Report 6487963-8 (Version None)
Quarter: 2009Q4

REPORT INFORMATION
  Report Type: 
  Country: None (occurrence: None)
  Receive Date: 20091209
  Receipt Date: 20091209
  Transmission Date: 20100525
  Serious: Yes (Hospitalization)
  Sender: FDA-Public Use
  Company Number: None

PATIENT
  Age: 75 Year
  Sex: Female
  Weight: 34.7 kg

DRUGS (6)
  1. OXYCODONE [Suspect]
     Indication: POSTOPERATIVE ANALGESIA
     Dosage: 80MG RECENT
  2. APAP TAB [Concomitant]
  3. SENOKOT [Concomitant]
  4. HALDOL [Concomitant]
  5. MORPHINE [Concomitant]
  6. ZYPREXA/ZYDUS [Concomitant]

REACTIONS (2)
  - MENTAL STATUS CHANGES [None]
  - OVERDOSE [None]
